FAERS Safety Report 8400472-1 (Version None)
Quarter: 2012Q2

REPORT INFORMATION
  Report Type: 
  Country: None (occurrence: None)
  Receive Date: 20120531
  Receipt Date: 20120522
  Transmission Date: 20120825
  Serious: Yes (Hospitalization)
  Sender: FDA-Public Use
  Company Number: BR-ABBOTT-12P-020-0938304-00

PATIENT
  Sex: Female
  Weight: 50 kg

DRUGS (1)
  1. CREON [Suspect]
     Indication: PANCREATITIS CHRONIC
     Dosage: MORNING, LUNCH, AND NIGHT
     Route: 048
     Dates: start: 20120301

REACTIONS (18)
  - NAUSEA [None]
  - DYSPEPSIA [None]
  - VISION BLURRED [None]
  - RETCHING [None]
  - ABDOMINAL PAIN [None]
  - ANAEMIA [None]
  - FLATULENCE [None]
  - LIBIDO INCREASED [None]
  - FEELING HOT [None]
  - ERUCTATION [None]
  - ABDOMINAL RIGIDITY [None]
  - ANOREXIA NERVOSA [None]
  - CHOLELITHIASIS [None]
  - VOMITING [None]
  - BODY TEMPERATURE FLUCTUATION [None]
  - DYSURIA [None]
  - SALIVARY HYPERSECRETION [None]
  - BURNING SENSATION [None]
